FAERS Safety Report 8893613 (Version 1)
Quarter: 2012Q4

REPORT INFORMATION
  Report Type: 
  Country: US (occurrence: US)
  Receive Date: 20121107
  Receipt Date: 20121107
  Transmission Date: 20130627
  Serious: No
  Sender: FDA-Public Use
  Company Number: US-AMGEN-USASP2011060523

PATIENT
  Age: 51 Year
  Sex: Female

DRUGS (3)
  1. ENBREL [Suspect]
     Indication: UVEITIS
     Dosage: 50 mg, qwk
     Dates: start: 201103
  2. ENBREL [Suspect]
     Indication: SARCOIDOSIS
  3. METHOTREXATE [Concomitant]
     Dates: start: 201011

REACTIONS (1)
  - Metrorrhagia [Not Recovered/Not Resolved]
